FAERS Safety Report 4575274-7 (Version None)
Quarter: 2005Q1

REPORT INFORMATION
  Report Type: 
  Country: None (occurrence: None)
  Receive Date: 20050127
  Receipt Date: 20050127
  Transmission Date: 20050727
  Serious: Yes (Other)
  Sender: FDA-Public Use
  Company Number: None

PATIENT
  Age: 19 Year
  Sex: Male
  Weight: 69.4003 kg

DRUGS (1)
  1. NICODERM CQ [Suspect]
     Dosage: EVERY 16-24 HRS

REACTIONS (1)
  - HAEMATOCHEZIA [None]
